FAERS Safety Report 23577125 (Version 1)
Quarter: 2024Q1

REPORT INFORMATION
  Report Type: Report from Study
  Country: GB (occurrence: GB)
  Receive Date: 20240228
  Receipt Date: 20240228
  Transmission Date: 20240410
  Serious: Yes (Hospitalization, Other)
  Sender: FDA-Public Use
  Company Number: GB-KOREA IPSEN Pharma-2023-18392

PATIENT
  Age: 72 Year
  Sex: Male

DRUGS (2)
  1. LANREOTIDE ACETATE [Suspect]
     Active Substance: LANREOTIDE ACETATE
     Indication: Neuroendocrine tumour
     Dosage: 120MG/0.5ML
     Route: 058
  2. DEVICE [Suspect]
     Active Substance: DEVICE
     Indication: Neuroendocrine tumour

REACTIONS (3)
  - Pneumonia [Unknown]
  - Bacterial infection [Recovered/Resolved]
  - Inappropriate schedule of product administration [Unknown]

NARRATIVE: CASE EVENT DATE: 20240201
